FAERS Safety Report 4493033-0 (Version None)
Quarter: 2004Q4

REPORT INFORMATION
  Report Type: 
  Country: None (occurrence: None)
  Receive Date: 20041101
  Receipt Date: 20041018
  Transmission Date: 20050328
  Serious: Yes (Death, Hospitalization, Other)
  Sender: FDA-Public Use
  Company Number: 2004240456CA

PATIENT
  Age: 8 Year
  Sex: Male

DRUGS (5)
  1. CELEBREX [Suspect]
     Indication: PAIN
     Dosage: 300 MG, BID, ORAL
     Route: 048
     Dates: start: 20030717, end: 20030822
  2. CELEBREX [Suspect]
     Indication: PAIN
     Dosage: 300 MG, BID, ORAL
     Route: 048
     Dates: start: 20031001
  3. RANITIDINE [Concomitant]
  4. TYLENOL [Concomitant]
  5. INTERFERON ALFA [Concomitant]

REACTIONS (27)
  - ANAEMIA [None]
  - CARDIAC FAILURE CONGESTIVE [None]
  - CARDIOMYOPATHY [None]
  - CHEST PAIN [None]
  - COUGH [None]
  - CRACKLES LUNG [None]
  - DECREASED APPETITE [None]
  - GALLOP RHYTHM PRESENT [None]
  - GENERAL PHYSICAL HEALTH DETERIORATION [None]
  - HAEMATOCHEZIA [None]
  - HEADACHE [None]
  - HEPATOMEGALY [None]
  - HYPOTENSION [None]
  - LOSS OF CONSCIOUSNESS [None]
  - LYMPHADENOPATHY [None]
  - MALIGNANT NEOPLASM PROGRESSION [None]
  - MITOCHONDRIAL MYOPATHY [None]
  - NECK PAIN [None]
  - RECTAL HAEMORRHAGE [None]
  - RENAL CELL CARCINOMA STAGE UNSPECIFIED [None]
  - RESPIRATORY DISORDER [None]
  - SCROTAL OEDEMA [None]
  - SEPSIS [None]
  - TACHYCARDIA [None]
  - TACHYPNOEA [None]
  - URINE OUTPUT DECREASED [None]
  - WEIGHT DECREASED [None]
